FAERS Safety Report 5719948-0 (Version None)
Quarter: 2008Q2

REPORT INFORMATION
  Report Type: 
  Country: None (occurrence: None)
  Receive Date: 20080424
  Receipt Date: 20080408
  Transmission Date: 20081010
  Serious: Yes (Life-Threatening, Hospitalization, Other)
  Sender: FDA-Public Use
  Company Number: 2008EU000345

PATIENT
  Age: 56 Year
  Sex: Male
  Weight: 52 kg

DRUGS (5)
  1. PROGRAF [Suspect]
     Indication: HEART TRANSPLANT
     Dosage: 8 MG, BID, ORAL; 6 MG, BID, ORAL; 7 MG, BID, ORAL
     Route: 048
     Dates: start: 20061201
  2. PREDNISOLONE [Suspect]
     Indication: HEART TRANSPLANT
     Dosage: 15 MG, UID/QD, ORAL
     Route: 048
     Dates: start: 20061001
  3. CELLCEPT [Concomitant]
  4. KEPPRA [Concomitant]
  5. POTASSIUM CHLORIDE [Concomitant]

REACTIONS (10)
  - ARTHRITIS [None]
  - BRAIN ABSCESS [None]
  - HYPOGAMMAGLOBULINAEMIA [None]
  - IMMUNOSUPPRESSION [None]
  - LOBAR PNEUMONIA [None]
  - NOCARDIOSIS [None]
  - OPPORTUNISTIC INFECTION [None]
  - PATHOGEN RESISTANCE [None]
  - SUBCUTANEOUS ABSCESS [None]
  - TRANSPLANT REJECTION [None]
